FAERS Safety Report 8625254 (Version 2)
Quarter: 2012Q4

REPORT INFORMATION
  Report Type: 
  Country: ES (occurrence: ES)
  Receive Date: 20120620
  Receipt Date: 20121009
  Transmission Date: 20130627
  Serious: Yes (Hospitalization)
  Sender: FDA-Public Use
  Company Number: ES-ELI_LILLY_AND_COMPANY-ES201206003655

PATIENT
  Age: 83 None
  Sex: Female
  Weight: 62 kg

DRUGS (9)
  1. FORSTEO [Suspect]
     Indication: OSTEOPOROSIS
     Dosage: 20 ug, qd
     Route: 058
     Dates: start: 20120607
  2. METFORMIN [Concomitant]
     Indication: DIABETES MELLITUS
     Dosage: 850 mg, bid
     Route: 048
  3. JANUVIA [Concomitant]
     Indication: DIABETES MELLITUS
     Dosage: 100 mg, qd
     Route: 048
  4. SINVASTATINA [Concomitant]
     Dosage: 20 mg, qd
     Route: 048
  5. VERISCAL D [Concomitant]
     Indication: OSTEOPOROSIS
     Dosage: 60 mg, qd
     Route: 048
  6. PREGABALIN [Concomitant]
     Indication: PAIN
     Dosage: 75 mg, bid
     Route: 048
  7. HIDROCLOROTIAZIDE [Concomitant]
     Indication: HYPERTENSION
     Dosage: 25 mg, qd
     Route: 048
  8. HIDROFEROL [Concomitant]
     Indication: VITAMIN D
     Dosage: 266 mg, qd
     Route: 048
  9. OMEPRAZOL [Concomitant]
     Indication: GASTRIC DISORDER
     Dosage: 20 mg, qd
     Route: 048

REACTIONS (3)
  - Gastroenteritis [Recovering/Resolving]
  - Disorientation [Unknown]
  - Confusional state [Unknown]
